FAERS Safety Report 5687020-4 (Version None)
Quarter: 2008Q1

REPORT INFORMATION
  Report Type: 
  Country: None (occurrence: None)
  Receive Date: 20080328
  Receipt Date: 20070531
  Transmission Date: 20080703
  Serious: Yes (Hospitalization)
  Sender: FDA-Public Use
  Company Number: US-BAYER-US-2007-017422

PATIENT
  Age: 37 Year
  Sex: Female
  Weight: 81 kg

DRUGS (3)
  1. MIRENA [Suspect]
     Indication: MENOMETRORRHAGIA
     Route: 015
     Dates: start: 20060117, end: 20070127
  2. ESTRACE [Concomitant]
     Indication: VAGINAL HAEMORRHAGE
     Dosage: UNIT DOSE: 1 MG
  3. IRON [Concomitant]

REACTIONS (3)
  - ENDOMETRIAL HYPERTROPHY [None]
  - INTRA-UTERINE CONTRACEPTIVE DEVICE EXPELLED [None]
  - VAGINAL HAEMORRHAGE [None]
